FAERS Safety Report 7829509-5 (Version None)
Quarter: 2011Q4

REPORT INFORMATION
  Report Type: 
  Country: None (occurrence: None)
  Receive Date: 20111020
  Receipt Date: 20111017
  Transmission Date: 20120403
  Serious: Yes (Death)
  Sender: FDA-Public Use
  Company Number: DE-ROCHE-776745

PATIENT
  Sex: Female
  Weight: 38 kg

DRUGS (5)
  1. BISPHOSPHONATE NOS [Concomitant]
  2. METOPROLOL TARTRATE [Concomitant]
  3. XELODA [Suspect]
     Indication: BREAST CANCER
     Dosage: 3RD CYCLE COMPLETED
     Route: 048
  4. FEMARA [Concomitant]
  5. LAPATINIB [Suspect]
     Indication: BREAST CANCER
     Dosage: 3RD CYCLE COMPLETED
     Route: 048

REACTIONS (1)
  - DEATH [None]
